FAERS Safety Report 6008839-6 (Version None)
Quarter: 2008Q4

REPORT INFORMATION
  Report Type: 
  Country: None (occurrence: None)
  Receive Date: 20081217
  Receipt Date: 20060623
  Transmission Date: 20090506
  Serious: Yes (Other)
  Sender: FDA-Public Use
  Company Number: US-BAXTER-2008BH010242

PATIENT
  Sex: Female

DRUGS (2)
  1. POLYGAM S/D [Suspect]
     Indication: IMMUNODEFICIENCY COMMON VARIABLE
     Dosage: DOSE UNIT:UNKNOWN
     Route: 042
  2. GAMMAR-P I.V. [Suspect]
     Indication: IMMUNODEFICIENCY COMMON VARIABLE
     Dosage: DOSE UNIT:UNKNOWN
     Route: 042

REACTIONS (1)
  - HAEMOLYTIC ANAEMIA [None]
